FAERS Safety Report 5524724-8 (Version None)
Quarter: 2007Q4

REPORT INFORMATION
  Report Type: 
  Country: None (occurrence: None)
  Receive Date: 20071123
  Receipt Date: 20071114
  Transmission Date: 20080405
  Serious: Yes (Other)
  Sender: FDA-Public Use
  Company Number: PHBS2007JP19123

PATIENT
  Age: 9 Year
  Sex: Female

DRUGS (5)
  1. CYCLOSPORINE [Suspect]
     Indication: DERMATOMYOSITIS
     Route: 065
  2. PREDNISOLONE [Suspect]
     Indication: DERMATOMYOSITIS
     Dosage: 2 MG/KG/DAY
     Route: 065
  3. METHYLPREDNISOLONE [Suspect]
     Indication: DERMATOMYOSITIS
  4. METHOTREXATE [Suspect]
     Indication: DERMATOMYOSITIS
     Route: 065
  5. IMMUNOGLOBULINS [Suspect]
     Indication: DERMATOMYOSITIS
     Route: 042

REACTIONS (1)
  - CALCINOSIS [None]
